FAERS Safety Report 5572082-5 (Version None)
Quarter: 2007Q4

REPORT INFORMATION
  Report Type: 
  Country: None (occurrence: None)
  Receive Date: 20071221
  Receipt Date: 20071211
  Transmission Date: 20080405
  Serious: Yes (Other)
  Sender: FDA-Public Use
  Company Number: US-PFIZER INC-2007100582

PATIENT
  Sex: Male
  Weight: 71.6 kg

DRUGS (5)
  1. MARAVIROC [Suspect]
     Indication: HIV INFECTION
     Route: 048
     Dates: start: 20071002, end: 20071130
  2. VIDEX [Concomitant]
     Route: 048
     Dates: start: 20071002, end: 20071130
  3. VIREAD [Concomitant]
     Route: 048
     Dates: start: 20071002, end: 20071130
  4. TMC-114 [Concomitant]
     Route: 048
     Dates: start: 20071002, end: 20071130
  5. NORVIR [Concomitant]
     Route: 048
     Dates: start: 20071002, end: 20071130

REACTIONS (2)
  - BLOOD CREATINE PHOSPHOKINASE INCREASED [None]
  - CHEST PAIN [None]
